FAERS Safety Report 8632917 (Version 2)
Quarter: 2012Q4

REPORT INFORMATION
  Report Type: 
  Country: US (occurrence: US)
  Receive Date: 20120625
  Receipt Date: 20121112
  Transmission Date: 20130627
  Serious: Yes (Other)
  Sender: FDA-Public Use
  Company Number: US-ASTRAZENECA-2012SE40736

PATIENT
  Age: 61 Year
  Sex: Female

DRUGS (4)
  1. NEXIUM [Suspect]
     Route: 048
  2. OMEPRAZOLE [Suspect]
     Route: 048
  3. LYRICA [Suspect]
     Route: 065
  4. CYMBALTA [Concomitant]

REACTIONS (10)
  - Sleep apnoea syndrome [Unknown]
  - Abnormal dreams [Unknown]
  - Fibromyalgia [Unknown]
  - Hiatus hernia [Unknown]
  - Euphoric mood [Unknown]
  - Osteoporosis [Unknown]
  - Gastric disorder [Unknown]
  - Off label use [Unknown]
  - Drug ineffective [Unknown]
  - Drug dose omission [Unknown]
